FAERS Safety Report 7940567-X (Version None)
Quarter: 2011Q4

REPORT INFORMATION
  Report Type: 
  Country: None (occurrence: None)
  Receive Date: 20111114
  Receipt Date: 20110622
  Transmission Date: 20120403
  Serious: Yes (Other)
  Sender: FDA-Public Use
  Company Number: 2011S1000421

PATIENT
  Age: 70 Year
  Sex: Male

DRUGS (4)
  1. CUBICIN [Suspect]
     Indication: BACTERAEMIA
  2. ZYVOX [Concomitant]
  3. LASIX-K [Concomitant]
  4. ROCEPHIN [Concomitant]

REACTIONS (2)
  - EOSINOPHILIC PNEUMONIA [None]
  - PANCREATITIS [None]
